FAERS Safety Report 10021171 (Version 1)
Quarter: 2014Q1

REPORT INFORMATION
  Report Type: Spontaneous
  Country: US (occurrence: US)
  Receive Date: 20140319
  Receipt Date: 20140319
  Transmission Date: 20141002
  Serious: No
  Sender: FDA-Public Use
  Company Number: US-PFIZER INC-2014076829

PATIENT
  Age: 43 Year
  Sex: Female

DRUGS (4)
  1. MORPHINE SULFATE [Suspect]
     Dosage: UNK, WHEN NEEDED
     Route: 048
  2. MEXILETINE [Suspect]
     Dosage: UNK, WHEN NEEDED
     Route: 048
  3. LIDOCAINE [Suspect]
     Indication: PAIN
     Dosage: EVERY 3 MONTHS OR SO
     Route: 042
  4. KETAMINE [Suspect]
     Indication: PAIN
     Dosage: EVERY 3 MONTHS OR SO
     Route: 042

REACTIONS (1)
  - Drug effect incomplete [Unknown]
